FAERS Safety Report 7027376-3 (Version None)
Quarter: 2010Q4

REPORT INFORMATION
  Report Type: 
  Country: None (occurrence: None)
  Receive Date: 20101004
  Receipt Date: 20100929
  Transmission Date: 20110411
  Serious: Yes (Death)
  Sender: FDA-Public Use
  Company Number: PHHY2010US45893

PATIENT
  Sex: Male

DRUGS (3)
  1. EXJADE [Suspect]
     Indication: LYMPHATIC DISORDER
     Dosage: 2000 MG, QD
     Route: 048
  2. EXJADE [Suspect]
     Dosage: 1250 MG, DAILY
     Route: 048
     Dates: start: 20100601, end: 20100801
  3. ZOFRAN [Concomitant]
     Route: 048

REACTIONS (7)
  - CERUMEN REMOVAL [None]
  - EAR INFECTION [None]
  - HEADACHE [None]
  - LEUKAEMIA [None]
  - MYELODYSPLASTIC SYNDROME [None]
  - MYELOFIBROSIS [None]
  - PYREXIA [None]
